FAERS Safety Report 5015735-X (Version None)
Quarter: 2006Q2

REPORT INFORMATION
  Report Type: 
  Country: None (occurrence: None)
  Receive Date: 20060601
  Receipt Date: 20060221
  Transmission Date: 20061013
  Serious: Yes (Other)
  Sender: FDA-Public Use
  Company Number: US-GLAXOSMITHKLINE-A0594613A

PATIENT
  Age: 72 Year
  Sex: Female

DRUGS (7)
  1. BEXXAR [Suspect]
     Indication: NON-HODGKIN'S LYMPHOMA
     Route: 042
     Dates: start: 20060109, end: 20060131
  2. IODINE [Concomitant]
  3. CHOP CHEMOTHERAPY [Concomitant]
  4. RITUXAN [Concomitant]
  5. FLUDARABINE [Concomitant]
  6. CHEMOTHERAPY [Concomitant]
  7. RADIATION THERAPY [Concomitant]

REACTIONS (4)
  - CANCER PAIN [None]
  - DRUG INEFFECTIVE [None]
  - INSOMNIA [None]
  - MOVEMENT DISORDER [None]
